FAERS Safety Report 5454987-9 (Version None)
Quarter: 2007Q3

REPORT INFORMATION
  Report Type: 
  Country: None (occurrence: None)
  Receive Date: 20070917
  Receipt Date: 20070907
  Transmission Date: 20080115
  Serious: Yes (Hospitalization)
  Sender: FDA-Public Use
  Company Number: GB-ABBOTT-97P-167-0074479-00

PATIENT
  Sex: Female

DRUGS (8)
  1. CLARITHROMYCIN [Suspect]
     Indication: SKIN INFECTION
     Route: 048
     Dates: start: 19970213, end: 19970219
  2. CLARITHROMYCIN [Suspect]
  3. CLARITHROMYCIN [Suspect]
  4. CLARITHROMYCIN [Suspect]
  5. IRON SULPHATE [Suspect]
     Indication: IRON DEFICIENCY
  6. DI-GESIC [Concomitant]
     Indication: RHEUMATOID ARTHRITIS
     Route: 048
     Dates: start: 19950101, end: 19970101
  7. OMEPRAZOLE [Concomitant]
     Indication: DRUG USE FOR UNKNOWN INDICATION
     Route: 048
     Dates: start: 19950101, end: 19970219
  8. AZATHIOPRINE [Concomitant]
     Indication: RHEUMATOID ARTHRITIS
     Route: 048
     Dates: start: 19960101, end: 19961201

REACTIONS (1)
  - AGRANULOCYTOSIS [None]
